FAERS Safety Report 8533985-2 (Version None)
Quarter: 2012Q2

REPORT INFORMATION
  Report Type: 
  Country: None (occurrence: None)
  Receive Date: 20120412
  Receipt Date: 20090224
  Transmission Date: 20120825
  Serious: Yes (Other)
  Sender: FDA-Public Use
  Company Number: PHEH2009US01626

PATIENT
  Age: 13 Year
  Sex: Female

DRUGS (2)
  1. CLOZARIL [Suspect]
     Indication: PERSONALITY DISORDER
     Dosage: 100 MG, 4 QHS
     Dates: start: 20080701
  2. CLOZARIL [Suspect]
     Indication: POST-TRAUMATIC STRESS DISORDER
     Dosage: 100 MG, 4 QHS
     Dates: start: 20080701

REACTIONS (9)
  - LYMPHOCYTE COUNT INCREASED [None]
  - MEAN CELL VOLUME ABNORMAL [None]
  - ANISOCYTOSIS [None]
  - HAEMATOCRIT DECREASED [None]
  - RED CELL DISTRIBUTION WIDTH INCREASED [None]
  - POIKILOCYTOSIS [None]
  - NEUTROPHIL COUNT DECREASED [None]
  - HAEMOGLOBIN DECREASED [None]
  - MEAN CELL HAEMOGLOBIN DECREASED [None]
